FAERS Safety Report 23796780 (Version 2)
Quarter: 2024Q2

REPORT INFORMATION
  Report Type: Spontaneous
  Country: US (occurrence: US)
  Receive Date: 20240430
  Receipt Date: 20240517
  Transmission Date: 20240716
  Serious: Yes (Death, Hospitalization)
  Sender: FDA-Public Use
  Company Number: US-TEVA-VS-3190782

PATIENT
  Age: 62 Year
  Sex: Female

DRUGS (1)
  1. HYDROXYCHLOROQUINE [Suspect]
     Active Substance: HYDROXYCHLOROQUINE
     Indication: Chronic cutaneous lupus erythematosus
     Route: 065

REACTIONS (5)
  - Hepatotoxicity [Fatal]
  - Metabolic encephalopathy [Unknown]
  - Pneumatosis intestinalis [Fatal]
  - Hepatic cirrhosis [Unknown]
  - Intestinal ischaemia [Fatal]
